FAERS Safety Report 5103404-7 (Version None)
Quarter: 2006Q3

REPORT INFORMATION
  Report Type: 
  Country: None (occurrence: None)
  Receive Date: 20060913
  Receipt Date: 20060907
  Transmission Date: 20061208
  Serious: Yes (Other)
  Sender: FDA-Public Use
  Company Number: GB-AVENTIS-200619328GDDC

PATIENT
  Age: 47 Year
  Sex: Female
  Weight: 110 kg

DRUGS (6)
  1. LANTUS [Suspect]
     Indication: HYPERGLYCAEMIA
     Route: 058
     Dates: start: 20060223
  2. AVANDIA [Concomitant]
     Indication: DIABETES MELLITUS
     Route: 048
     Dates: start: 20051207
  3. CRESTOR [Concomitant]
     Indication: HYPERLIPIDAEMIA
     Route: 048
     Dates: start: 20030401
  4. FLUCLOXACILLIN [Concomitant]
     Indication: URINARY TRACT INFECTION
     Route: 048
     Dates: start: 20060220, end: 20060227
  5. METFORMIN HCL [Concomitant]
     Indication: DIABETES MELLITUS
     Route: 048
  6. RELIFEX [Concomitant]
     Indication: OSTEOARTHRITIS
     Route: 048
     Dates: start: 20041201

REACTIONS (3)
  - ALOPECIA [None]
  - INJECTION SITE REACTION [None]
  - RASH PRURITIC [None]
